FAERS Safety Report 7184840-4 (Version None)
Quarter: 2010Q4

REPORT INFORMATION
  Report Type: 
  Country: None (occurrence: None)
  Receive Date: 20101222
  Receipt Date: 20101221
  Transmission Date: 20110411
  Serious: Yes (Hospitalization)
  Sender: FDA-Public Use
  Company Number: ES-SP-2010-07012

PATIENT
  Age: 65 Year

DRUGS (1)
  1. BCG  THERAPEUTICS [Suspect]
     Indication: BLADDER NEOPLASM
     Dosage: NOT REPORTED
     Route: 043

REACTIONS (9)
  - COAGULOPATHY [None]
  - INTESTINAL ISCHAEMIA [None]
  - LIVER FUNCTION TEST ABNORMAL [None]
  - LOSS OF CONSCIOUSNESS [None]
  - OLIGURIA [None]
  - PYREXIA [None]
  - RENAL FAILURE [None]
  - RESPIRATORY FAILURE [None]
  - SEPSIS [None]
